FAERS Safety Report 6248907-7 (Version None)
Quarter: 2009Q2

REPORT INFORMATION
  Report Type: 
  Country: None (occurrence: None)
  Receive Date: 20090629
  Receipt Date: 20090616
  Transmission Date: 20091009
  Serious: Yes (Hospitalization, Disabling)
  Sender: FDA-Public Use
  Company Number: AU-PFIZER INC-2009231795

PATIENT
  Age: 53 Year

DRUGS (12)
  1. CHAMPIX [Suspect]
     Indication: SMOKING CESSATION THERAPY
     Dosage: UNK
     Route: 048
     Dates: start: 20081101
  2. PARNATE [Concomitant]
     Indication: DEPRESSION
     Dosage: 90 MG, UNK
     Route: 048
  3. LASIX [Concomitant]
     Dosage: 40 MG, 1X/DAY
     Route: 048
  4. METFORMIN [Concomitant]
     Dosage: 500 MG, 3X/DAY
     Route: 048
  5. LIPITOR [Concomitant]
     Dosage: 20 MG, UNK
  6. ACETAMINOPHEN [Concomitant]
  7. VENTOLIN [Concomitant]
  8. SERETIDE [Concomitant]
  9. GASTRO-STOP [Concomitant]
  10. OSTELIN [Concomitant]
  11. PRILOSEC [Concomitant]
     Dosage: 20 MG, UNK
  12. CHLORPROMAZINE [Concomitant]
     Dosage: 40 MG, 2X/DAY

REACTIONS (5)
  - DEPRESSED MOOD [None]
  - HALLUCINATION [None]
  - INTENTIONAL SELF-INJURY [None]
  - NAUSEA [None]
  - PARANOIA [None]
